FAERS Safety Report 25869233 (Version 1)
Quarter: 2025Q4

REPORT INFORMATION
  Report Type: Spontaneous
  Country: US (occurrence: US)
  Receive Date: 20251001
  Receipt Date: 20251001
  Transmission Date: 20260118
  Serious: No
  Sender: EISAI
  Company Number: US-Eisai-EC-2025-196644

PATIENT
  Age: 67 Year
  Sex: Female

DRUGS (1)
  1. LEQEMBI [Suspect]
     Active Substance: LECANEMAB-IRMB
     Indication: Dementia Alzheimer^s type
     Dosage: DOSE UNKNOWN
     Route: 042
     Dates: start: 2025, end: 20250820

REACTIONS (1)
  - Amyloid related imaging abnormality-microhaemorrhages and haemosiderin deposits [Unknown]

NARRATIVE: CASE EVENT DATE: 20250826
